FAERS Safety Report 10630467 (Version 2)
Quarter: 2014Q4

REPORT INFORMATION
  Report Type: Spontaneous
  Country: US (occurrence: US)
  Receive Date: 20141205
  Receipt Date: 20141205
  Transmission Date: 20150529
  Serious: No
  Sender: FDA-Public Use
  Company Number: US-BRISTOL-MYERS SQUIBB COMPANY-19333186

PATIENT
  Age: 70 Year
  Sex: Female
  Weight: 68.04 kg

DRUGS (3)
  1. BYETTA [Suspect]
     Active Substance: EXENATIDE
     Indication: TYPE 2 DIABETES MELLITUS
     Dosage: INJECTION
     Route: 058
     Dates: start: 20060201, end: 200603
  2. SYMLIN [Suspect]
     Active Substance: PRAMLINTIDE ACETATE
     Indication: TYPE 2 DIABETES MELLITUS
     Dosage: SYMLIN INJECTION
     Route: 058
     Dates: start: 20060523
  3. SYMLIN [Suspect]
     Active Substance: PRAMLINTIDE ACETATE
     Indication: TYPE 2 DIABETES MELLITUS
     Route: 058
     Dates: start: 200603, end: 20060522

REACTIONS (7)
  - Feeling abnormal [Not Recovered/Not Resolved]
  - Fatigue [Not Recovered/Not Resolved]
  - Sinus headache [Not Recovered/Not Resolved]
  - Abdominal pain upper [Recovering/Resolving]
  - Eructation [Not Recovered/Not Resolved]
  - Epigastric discomfort [Not Recovered/Not Resolved]
  - Nausea [Not Recovered/Not Resolved]

NARRATIVE: CASE EVENT DATE: 200602
